FAERS Safety Report 20338712 (Version 1)
Quarter: 2022Q1

REPORT INFORMATION
  Report Type: Spontaneous
  Country: US (occurrence: US)
  Receive Date: 20220116
  Receipt Date: 20220116
  Transmission Date: 20220424
  Serious: Yes (Other)
  Sender: FDA-Public Use
  Company Number: US-NOVARTISPH-NVSC2022US005744

PATIENT
  Age: 56 Year
  Sex: Male

DRUGS (6)
  1. RANITIDINE [Suspect]
     Active Substance: RANITIDINE
     Indication: Hypersensitivity
     Dosage: 150 MG, QD
     Route: 065
     Dates: start: 201002, end: 201805
  2. RANITIDINE [Suspect]
     Active Substance: RANITIDINE
     Indication: Urticaria
  3. RANITIDINE [Suspect]
     Active Substance: RANITIDINE
     Indication: Pruritus
  4. RANITIDINE [Suspect]
     Active Substance: RANITIDINE
     Indication: Hypersensitivity
     Dosage: 150 MG, QD
     Route: 065
     Dates: start: 201002, end: 201805
  5. RANITIDINE [Suspect]
     Active Substance: RANITIDINE
     Indication: Urticaria
  6. RANITIDINE [Suspect]
     Active Substance: RANITIDINE
     Indication: Pruritus

REACTIONS (3)
  - Prostate cancer stage IV [Unknown]
  - Skin cancer [Unknown]
  - Product use in unapproved indication [Unknown]

NARRATIVE: CASE EVENT DATE: 20141001
